FAERS Safety Report 14683592 (Version 1)
Quarter: 2018Q1

REPORT INFORMATION
  Report Type: Spontaneous
  Country: US (occurrence: US)
  Receive Date: 20180327
  Receipt Date: 20180327
  Transmission Date: 20180509
  Serious: Yes (Death)
  Sender: FDA-Public Use
  Company Number: US-B.I. PHARMACEUTICALS,INC./RIDGEFIELD-2018-BI-016881

PATIENT
  Age: 85 Year
  Sex: Male

DRUGS (5)
  1. PEROFORMIST [Concomitant]
     Indication: CHRONIC OBSTRUCTIVE PULMONARY DISEASE
     Dosage: FORM STRENGTH: 20MCG/2ML
     Route: 055
  2. BUDESONIDE. [Concomitant]
     Active Substance: BUDESONIDE
     Indication: CHRONIC OBSTRUCTIVE PULMONARY DISEASE
     Dosage: FORM STRENGTH: 0.5MG/2 ML
     Route: 055
  3. OFEV [Suspect]
     Active Substance: NINTEDANIB
     Route: 048
     Dates: start: 201803
  4. OXYGEN. [Concomitant]
     Active Substance: OXYGEN
     Indication: PRODUCT USED FOR UNKNOWN INDICATION
     Route: 065
  5. OFEV [Suspect]
     Active Substance: NINTEDANIB
     Indication: IDIOPATHIC PULMONARY FIBROSIS
     Route: 048
     Dates: start: 2017, end: 201803

REACTIONS (7)
  - Weight decreased [Unknown]
  - Bowel movement irregularity [Unknown]
  - Abdominal pain upper [Unknown]
  - Abdominal distension [Unknown]
  - Asthenia [Unknown]
  - Diarrhoea [Unknown]
  - Death [Fatal]

NARRATIVE: CASE EVENT DATE: 2017
